FAERS Safety Report 12703418 (Version 2)
Quarter: 2016Q4

REPORT INFORMATION
  Report Type: Spontaneous
  Country: US (occurrence: US)
  Receive Date: 20160831
  Receipt Date: 20161018
  Transmission Date: 20170207
  Serious: No
  Sender: FDA-Public Use
  Company Number: US-PFIZER INC-2016407152

PATIENT
  Age: 49 Year
  Sex: Female
  Weight: 64.41 kg

DRUGS (5)
  1. ADVIL [Suspect]
     Active Substance: IBUPROFEN
     Indication: BACK PAIN
  2. CENTRUM [Concomitant]
     Active Substance: VITAMINS
     Indication: SUPPLEMENTATION THERAPY
     Dosage: 1 DF, DAILY
  3. ADVIL [Suspect]
     Active Substance: IBUPROFEN
     Indication: HEADACHE
  4. ADVIL [Suspect]
     Active Substance: IBUPROFEN
     Indication: MENSTRUAL DISORDER
     Dosage: 200 MG, AS NEEDED
     Route: 048
     Dates: start: 201608, end: 20160825
  5. ADVIL [Suspect]
     Active Substance: IBUPROFEN
     Indication: MUSCLE SPASMS

REACTIONS (3)
  - Drug ineffective [Unknown]
  - Poor quality drug administered [Unknown]
  - Product quality issue [Unknown]

NARRATIVE: CASE EVENT DATE: 201608
